FAERS Safety Report 4765140-6 (Version None)
Quarter: 2005Q3

REPORT INFORMATION
  Report Type: 
  Country: None (occurrence: None)
  Receive Date: 20050906
  Receipt Date: 20050822
  Transmission Date: 20060218
  Serious: Yes (Death, Hospitalization)
  Sender: FDA-Public Use
  Company Number: 2005054965

PATIENT
  Age: 70 Year
  Sex: Female
  Weight: 81.6475 kg

DRUGS (17)
  1. ZOLOFT [Suspect]
     Indication: DEPRESSION
     Dosage: 50 MG (50 MG, 1 IN 1 D), ORAL
     Route: 048
  2. PROZAC [Suspect]
     Indication: DEPRESSION
     Dosage: (40 MG
  3. ALL OTHER THERAPEUTIC PRODUCTS (ALL OTHER THERAPEUTIC PRODUCTS [Concomitant]
  4. ALBUTEROL [Concomitant]
  5. TOPRAL (SULTOPRIDE) [Concomitant]
  6. CO-AMOXICLAV (AMOXICILLIN TRIHYDRATE, CLAVULANATE POTASSIUM) [Concomitant]
  7. LISINOPRIL [Concomitant]
  8. SYNTHROID [Concomitant]
  9. CALCIUM WITH VITAMIN D (CALCIUM PHOSPHATE, CALCIUM SODIUM LACTATE, ERG [Concomitant]
  10. OMEPRAZOLE [Concomitant]
  11. KCL (POTASSIUM CHLORIDE) [Concomitant]
  12. VITAMIN B W/ZINC (VITAMIN B NOS, ZINC) [Concomitant]
  13. LASIX [Concomitant]
  14. CELECOXIB (CELECOXIB) [Concomitant]
  15. COLACE (DOCUSATE SODIUM) [Concomitant]
  16. PRED-FORTE (PREDNISOLONE ACETATE) [Concomitant]
  17. COSOPT [Concomitant]

REACTIONS (2)
  - CATARACT [None]
  - RESPIRATORY ARREST [None]
